FAERS Safety Report 8411721 (Version 3)
Quarter: 2014Q2

REPORT INFORMATION
  Report Type: Spontaneous
  Country: US (occurrence: US)
  Receive Date: 20120217
  Receipt Date: 20140417
  Transmission Date: 20141212
  Serious: Yes (Life-Threatening, Hospitalization, Disabling, Other)
  Sender: FDA-Public Use
  Company Number: US-GLAXOSMITHKLINE-A0966223A

PATIENT
  Age: 60 Year
  Sex: Female

DRUGS (11)
  1. LAMICTAL XR [Suspect]
     Indication: PARTIAL SEIZURES
     Dosage: 400MG PER DAY
     Route: 048
  2. ZONEGRAN [Suspect]
     Indication: PRODUCT USED FOR UNKNOWN INDICATION
     Route: 065
     Dates: start: 2012
  3. DEPAKOTE [Suspect]
     Indication: PRODUCT USED FOR UNKNOWN INDICATION
  4. CIPRO [Suspect]
     Indication: URINARY TRACT INFECTION
     Route: 065
  5. BACTRIM [Suspect]
     Indication: URINARY TRACT INFECTION
     Route: 065
  6. CALCIUM [Concomitant]
  7. UNKNOWN [Concomitant]
  8. VITAMIN D [Concomitant]
  9. VITAMIN B [Concomitant]
  10. TRAZODONE [Concomitant]
  11. CELEXA [Concomitant]

REACTIONS (18)
  - Fall [Recovered/Resolved]
  - Loss of consciousness [Recovered/Resolved]
  - Visual impairment [Recovered/Resolved]
  - Tremor [Recovered/Resolved]
  - Overdose [Unknown]
  - Adverse event [Unknown]
  - Sinusitis [Recovered/Resolved]
  - Nausea [Recovered/Resolved]
  - Vomiting [Recovered/Resolved]
  - Muscular weakness [Recovered/Resolved]
  - Fatigue [Recovered/Resolved]
  - Blood glucose decreased [Recovered/Resolved]
  - Dizziness [Recovered/Resolved]
  - Convulsion [Recovered/Resolved]
  - Drug interaction [Recovered/Resolved]
  - Feeling abnormal [Recovered/Resolved]
  - Anticonvulsant drug level decreased [Unknown]
  - Paralysis [Recovered/Resolved]
